FAERS Safety Report 8593821-5 (Version None)
Quarter: 2012Q3

REPORT INFORMATION
  Report Type: 
  Country: None (occurrence: None)
  Receive Date: 20120814
  Receipt Date: 20120726
  Transmission Date: 20120928
  Serious: No
  Sender: FDA-Public Use
  Company Number: US-ASTRAZENECA-2012SE52714

PATIENT
  Age: 46 Year
  Sex: Male

DRUGS (1)
  1. SEROQUEL XR [Suspect]
     Indication: BIPOLAR DISORDER
     Route: 048

REACTIONS (6)
  - VOMITING [None]
  - MIGRAINE [None]
  - NAUSEA [None]
  - DRUG DOSE OMISSION [None]
  - MALAISE [None]
  - ADVERSE EVENT [None]
